FAERS Safety Report 7702751-X (Version None)
Quarter: 2011Q3

REPORT INFORMATION
  Report Type: 
  Country: None (occurrence: None)
  Receive Date: 20110823
  Receipt Date: 20110225
  Transmission Date: 20111222
  Serious: No
  Sender: FDA-Public Use
  Company Number: US-BAYER-2011-018264

PATIENT
  Sex: Female

DRUGS (1)
  1. MIRENA [Suspect]
     Indication: CONTRACEPTION
     Dosage: 20 MCG/24HR, CONT
     Route: 015
     Dates: start: 20100901

REACTIONS (6)
  - WEIGHT INCREASED [None]
  - HYPOMENORRHOEA [None]
  - MUSCLE SPASMS [None]
  - ABDOMINAL DISCOMFORT [None]
  - MEDICAL DEVICE COMPLICATION [None]
  - VAGINAL HAEMORRHAGE [None]
